FAERS Safety Report 10624621 (Version 2)
Quarter: 2015Q1

REPORT INFORMATION
  Report Type: Report from Study
  Country: US (occurrence: US)
  Receive Date: 20141203
  Receipt Date: 20150224
  Transmission Date: 20150720
  Serious: Yes (Hospitalization, Other)
  Sender: FDA-Public Use
  Company Number: US-TEVA-522696USA

PATIENT
  Age: 25 Year
  Sex: Male

DRUGS (4)
  1. FLONASE [Concomitant]
     Active Substance: FLUTICASONE PROPIONATE
  2. AMBIEN [Suspect]
     Active Substance: ZOLPIDEM TARTRATE
  3. VITAMIN D [Concomitant]
     Active Substance: CHOLECALCIFEROL
  4. CLARAVIS [Suspect]
     Active Substance: ISOTRETINOIN

REACTIONS (3)
  - Overdose [Recovered/Resolved]
  - Mental disorder [Recovered/Resolved]
  - Suicide attempt [Recovered/Resolved]

NARRATIVE: CASE EVENT DATE: 20141022
